FAERS Safety Report 4430232-8 (Version None)
Quarter: 2004Q3

REPORT INFORMATION
  Report Type: 
  Country: None (occurrence: None)
  Receive Date: 20040818
  Receipt Date: 20040816
  Transmission Date: 20050211
  Serious: Yes (Death, Other)
  Sender: FDA-Public Use
  Company Number: 04-07-1074

PATIENT
  Age: 43 Year
  Sex: Female
  Weight: 102.9665 kg

DRUGS (10)
  1. CLOZAPINE [Suspect]
     Dosage: 400MG HS ORAL
     Route: 048
     Dates: start: 19980401, end: 20040801
  2. ATIVAN [Concomitant]
  3. AMBIEN [Concomitant]
  4. PHENERGAN HCL [Concomitant]
  5. SENNA [Concomitant]
  6. FENTANYL [Concomitant]
  7. RISPERDAL [Concomitant]
  8. LORTAB [Concomitant]
  9. DECADRON [Concomitant]
  10. DILANTIN [Concomitant]

REACTIONS (1)
  - GLIOBLASTOMA [None]
